FAERS Safety Report 6101206-6 (Version None)
Quarter: 2009Q1

REPORT INFORMATION
  Report Type: 
  Country: None (occurrence: None)
  Receive Date: 20090304
  Receipt Date: 20090227
  Transmission Date: 20090719
  Serious: Yes (Other)
  Sender: FDA-Public Use
  Company Number: US-ALLERGAN-0902667US

PATIENT
  Sex: Female

DRUGS (4)
  1. RESTASIS [Suspect]
     Indication: DRY EYE
     Dosage: UNK, UNK
     Route: 047
     Dates: start: 20080401, end: 20080501
  2. RESTASIS [Suspect]
     Dates: start: 20081101
  3. BANDAGE CONTACT [Suspect]
     Indication: DRY EYE
  4. STEROID [Suspect]
     Indication: DRY EYE

REACTIONS (2)
  - EYE PAIN [None]
  - KERATITIS [None]
